FAERS Safety Report 20139732 (Version 1)
Quarter: 2021Q4

REPORT INFORMATION
  Report Type: Spontaneous
  Country: US (occurrence: US)
  Receive Date: 20211202
  Receipt Date: 20211202
  Transmission Date: 20220303
  Serious: Yes (Other)
  Sender: FDA-Public Use
  Company Number: US-PFIZER INC-202101648877

PATIENT
  Age: 50 Year
  Sex: Male

DRUGS (1)
  1. XANAX [Suspect]
     Active Substance: ALPRAZOLAM
     Dosage: HALF OF MILLIGRAM IN THE MORNING AND THEN ONE AT NIGHT

REACTIONS (2)
  - Cerebrovascular accident [Unknown]
  - Therapeutic response unexpected [Unknown]
